FAERS Safety Report 7974104-0 (Version None)
Quarter: 2011Q4

REPORT INFORMATION
  Report Type: 
  Country: None (occurrence: None)
  Receive Date: 20111213
  Receipt Date: 20111202
  Transmission Date: 20120403
  Serious: Yes (Other)
  Sender: FDA-Public Use
  Company Number: US-MYLANLABS-2011S1025135

PATIENT
  Sex: Male

DRUGS (1)
  1. AMNESTEEM [Suspect]

REACTIONS (2)
  - HAEMATEMESIS [None]
  - EPISTAXIS [None]
